FAERS Safety Report 15546584 (Version 1)
Quarter: 2018Q4

REPORT INFORMATION
  Report Type: Spontaneous
  Country: US (occurrence: US)
  Receive Date: 20181024
  Receipt Date: 20181024
  Transmission Date: 20190205
  Serious: Yes (Other)
  Sender: FDA-Public Use
  Company Number: US-NOVOPROD-627745

PATIENT
  Age: 66 Year
  Sex: Female
  Weight: 82.99 kg

DRUGS (2)
  1. SAXENDA [Suspect]
     Active Substance: LIRAGLUTIDE
     Indication: OVERWEIGHT
     Dosage: UNK UNK, QD
     Route: 058
     Dates: start: 20170201, end: 20171001
  2. SAXENDA [Suspect]
     Active Substance: LIRAGLUTIDE
     Indication: GLUCOSE TOLERANCE IMPAIRED

REACTIONS (2)
  - Hepatic neoplasm [Unknown]
  - Colon cancer [Not Recovered/Not Resolved]

NARRATIVE: CASE EVENT DATE: 20180912
